FAERS Safety Report 15478495 (Version 1)
Quarter: 2018Q4

REPORT INFORMATION
  Report Type: Spontaneous
  Country: FR (occurrence: FR)
  Receive Date: 20181009
  Receipt Date: 20181009
  Transmission Date: 20190205
  Serious: Yes (Death, Hospitalization)
  Sender: FDA-Public Use
  Company Number: FR-ASTELLAS-2018US043719

PATIENT
  Age: 45 Year
  Sex: Male

DRUGS (1)
  1. ERLOTINIB [Suspect]
     Active Substance: ERLOTINIB
     Indication: LUNG NEOPLASM MALIGNANT
     Dosage: UNK, ONCE DAILY
     Route: 065
     Dates: start: 20110902

REACTIONS (2)
  - Dyspnoea [Unknown]
  - Haemoptysis [Unknown]

NARRATIVE: CASE EVENT DATE: 20110908
